FAERS Safety Report 5900931-7 (Version None)
Quarter: 2008Q3

REPORT INFORMATION
  Report Type: 
  Country: None (occurrence: None)
  Receive Date: 20080925
  Receipt Date: 20080910
  Transmission Date: 20090109
  Serious: Yes (Disabling)
  Sender: FDA-Public Use
  Company Number: 2008S1016644

PATIENT
  Sex: Female

DRUGS (2)
  1. SERTRALINE HYDROCHLORIDE [Suspect]
     Indication: DEPRESSION
     Dosage: 150 MG;DAILY;ORAL
     Route: 048
     Dates: end: 20080816
  2. TRAZODONE HCL [Concomitant]

REACTIONS (1)
  - DRUG INEFFECTIVE [None]
